FAERS Safety Report 16142586 (Version 1)
Quarter: 2019Q1

REPORT INFORMATION
  Report Type: Spontaneous
  Country: US (occurrence: US)
  Receive Date: 20190226
  Receipt Date: 20190226
  Transmission Date: 20190418
  Serious: Yes (Hospitalization)
  Sender: FDA-Public Use
  Company Number: None

PATIENT
  Age: 84 Year
  Sex: Female
  Weight: 65.77 kg

DRUGS (6)
  1. DICLOFENAC MISOPROSTOL [Concomitant]
     Active Substance: DICLOFENAC SODIUM\MISOPROSTOL
  2. AMLODIPINE [Concomitant]
     Active Substance: AMLODIPINE BESYLATE
  3. NEXIUM [Concomitant]
     Active Substance: ESOMEPRAZOLE MAGNESIUM
  4. HYDROCHLOROTHIAZIDE. [Concomitant]
     Active Substance: HYDROCHLOROTHIAZIDE
  5. LISINOPRIL. [Concomitant]
     Active Substance: LISINOPRIL
  6. LEVOCETIRIZINE [Suspect]
     Active Substance: LEVOCETIRIZINE
     Indication: RASH
     Dosage: ?          QUANTITY:5 MG MILLIGRAM(S);OTHER FREQUENCY:1ST 1 EV FOR 10DAY;AND THEN 30 ... A ONCE A DAY  BY MOUTH?
     Route: 048
     Dates: end: 20190116

REACTIONS (4)
  - Respiratory rate increased [None]
  - Cardiac disorder [None]
  - Somnolence [None]
  - Heart rate increased [None]

NARRATIVE: CASE EVENT DATE: 20190110
